FAERS Safety Report 11754406 (Version 1)
Quarter: 2015Q4

REPORT INFORMATION
  Report Type: Spontaneous
  Country: FR (occurrence: FR)
  Receive Date: 20151119
  Receipt Date: 20151119
  Transmission Date: 20160304
  Serious: Yes (Death, Hospitalization)
  Sender: FDA-Public Use
  Company Number: PHHY2015FR150445

PATIENT
  Age: 72 Year
  Sex: Female

DRUGS (5)
  1. LEVOTHYROX [Concomitant]
     Active Substance: LEVOTHYROXINE
     Indication: THYROIDECTOMY
     Dosage: 100 UG, FOR YEARS
     Route: 065
  2. GLIVEC [Suspect]
     Active Substance: IMATINIB MESYLATE
     Indication: CHRONIC MYELOID LEUKAEMIA
     Dosage: 400 MG, UNK
     Route: 065
     Dates: start: 201306, end: 20150625
  3. STILNOX [Concomitant]
     Active Substance: ZOLPIDEM TARTRATE
     Indication: DEPRESSION
     Dosage: 10 MG, FOR YEARS
     Route: 065
  4. SPRYCEL [Suspect]
     Active Substance: DASATINIB
     Indication: CHRONIC MYELOID LEUKAEMIA
     Dosage: 70 MG, QD
     Route: 048
     Dates: start: 20150625, end: 20150715
  5. ASPEGIC                                 /HUN/ [Concomitant]
     Indication: PRODUCT USED FOR UNKNOWN INDICATION
     Dosage: 100 MG, UNK
     Route: 065
     Dates: start: 201501

REACTIONS (1)
  - Breast cancer [Fatal]

NARRATIVE: CASE EVENT DATE: 20150707
